FAERS Safety Report 12412256 (Version 1)
Quarter: 2016Q2

REPORT INFORMATION
  Report Type: Spontaneous
  Country: JP (occurrence: JP)
  Receive Date: 20160527
  Receipt Date: 20160527
  Transmission Date: 20160815
  Serious: Yes (Death)
  Sender: FDA-Public Use
  Company Number: JP-MALLINCKRODT-T201602073

PATIENT
  Age: 69 Year
  Sex: Male
  Weight: 53 kg

DRUGS (10)
  1. METHADONE [Suspect]
     Active Substance: METHADONE HYDROCHLORIDE
     Indication: CANCER PAIN
     Dosage: 10 MG (30 MG DAILY DOSE)
     Route: 048
     Dates: start: 20150302, end: 20150308
  2. BAYASPIRIN [Concomitant]
     Active Substance: ASPIRIN
     Dosage: 100 MG
     Route: 048
     Dates: start: 20141222, end: 20150515
  3. MAGLAX [Concomitant]
     Active Substance: MAGNESIUM OXIDE
     Dosage: 990 MG
     Route: 048
     Dates: start: 20140428, end: 20150515
  4. NOVAMIN [Concomitant]
     Active Substance: PROCHLORPERAZINE MALEATE
     Dosage: 15 MG
     Route: 048
     Dates: start: 20140428, end: 20150515
  5. SENNOSIDE [Concomitant]
     Active Substance: SENNOSIDES
     Dosage: 12 MG
     Route: 048
     Dates: start: 20140505, end: 20150515
  6. OXINORM [Concomitant]
     Active Substance: OXYCODONE HYDROCHLORIDE
     Indication: ANALGESIC THERAPY
     Dosage: 15 MG PRN
     Route: 048
     Dates: start: 20140219
  7. PLAVIX [Concomitant]
     Active Substance: CLOPIDOGREL BISULFATE
     Dosage: 75 MG
     Route: 048
     Dates: start: 20141229, end: 20150515
  8. CARVEDILOL. [Concomitant]
     Active Substance: CARVEDILOL
     Dosage: 1.25 MG
     Route: 048
     Dates: start: 20141229, end: 20150515
  9. CRESTOR [Concomitant]
     Active Substance: ROSUVASTATIN CALCIUM
     Dosage: 2.5 MG
     Route: 048
     Dates: start: 20141222, end: 20150515
  10. METHADONE [Suspect]
     Active Substance: METHADONE HYDROCHLORIDE
     Dosage: 15 MG (45 MG DAILY DOSE)
     Route: 048
     Dates: start: 20150309, end: 20150523

REACTIONS (1)
  - Lung neoplasm malignant [Fatal]
